FAERS Safety Report 6598589-X (Version None)
Quarter: 2010Q1

REPORT INFORMATION
  Report Type: 
  Country: None (occurrence: None)
  Receive Date: 20100224
  Receipt Date: 20100216
  Transmission Date: 20100710
  Serious: Yes (Hospitalization)
  Sender: FDA-Public Use
  Company Number: US-BIOGENIDEC-2010BI005137

PATIENT
  Age: 49 Year
  Sex: Female
  Weight: 71 kg

DRUGS (5)
  1. AVONEX [Suspect]
     Indication: MULTIPLE SCLEROSIS
     Route: 030
     Dates: end: 20100101
  2. GEODON [Concomitant]
     Indication: DEPRESSION
     Route: 048
  3. THEOPHYLLINE [Concomitant]
     Indication: DYSPNOEA
     Route: 048
  4. CLONIDINE [Concomitant]
     Route: 048
  5. CYMBALTA [Concomitant]
     Indication: BIPOLAR DISORDER
     Route: 048

REACTIONS (8)
  - CARDIAC FAILURE CONGESTIVE [None]
  - CHEST PAIN [None]
  - DYSPNOEA [None]
  - HYPOAESTHESIA [None]
  - LOSS OF CONSCIOUSNESS [None]
  - URINARY RETENTION [None]
  - VISUAL IMPAIRMENT [None]
  - WEIGHT DECREASED [None]
